FAERS Safety Report 6918842-7 (Version None)
Quarter: 2010Q3

REPORT INFORMATION
  Report Type: 
  Country: None (occurrence: None)
  Receive Date: 20100811
  Receipt Date: 20100727
  Transmission Date: 20110219
  Serious: Yes (Death, Hospitalization)
  Sender: FDA-Public Use
  Company Number: US-ELI_LILLY_AND_COMPANY-US201003004457

PATIENT
  Sex: Female

DRUGS (21)
  1. FORTEO [Suspect]
     Indication: OSTEOPOROSIS
     Dosage: 20 UG, DAILY (1/D)
     Dates: start: 20090701, end: 20100401
  2. FORTEO [Suspect]
     Dosage: 20 UG, DAILY (1/D)
     Dates: start: 20100401
  3. CALCIUM W/VITAMIN D NOS [Concomitant]
  4. METAMUCIL-2 [Concomitant]
  5. CLARITIN [Concomitant]
  6. IRON [Concomitant]
  7. OMEPRAZOLE [Concomitant]
  8. VICODIN [Concomitant]
  9. PERCOCET [Concomitant]
  10. DIGOXIN [Concomitant]
  11. METOPROLOL [Concomitant]
  12. FOLIC ACID [Concomitant]
  13. TORSEMIDE [Concomitant]
  14. K-DUR [Concomitant]
  15. COZAAR [Concomitant]
  16. ROZEREM [Concomitant]
  17. AMBIEN [Concomitant]
  18. ZOLOFT [Concomitant]
  19. BENADRYL [Concomitant]
  20. EPIPEN [Concomitant]
  21. LEFLUNOMIDE [Concomitant]

REACTIONS (6)
  - CARDIAC FAILURE [None]
  - COLONIC PSEUDO-OBSTRUCTION [None]
  - EMPYEMA [None]
  - PNEUMONIA [None]
  - RESPIRATORY FAILURE [None]
  - SMALL INTESTINAL OBSTRUCTION [None]
